FAERS Safety Report 21851617 (Version 1)
Quarter: 2023Q1

REPORT INFORMATION
  Report Type: Report from Study
  Country: US (occurrence: US)
  Receive Date: 20230112
  Receipt Date: 20230112
  Transmission Date: 20230418
  Serious: Yes (Other)
  Sender: FDA-Public Use
  Company Number: US-ABBVIE-4264286

PATIENT
  Sex: Female

DRUGS (1)
  1. HUMIRA [Suspect]
     Active Substance: ADALIMUMAB
     Indication: Rheumatoid arthritis
     Dosage: CITRATE FREE, STOP DATE DEC 2022
     Route: 058
     Dates: start: 20220411

REACTIONS (3)
  - Arthrectomy [Unknown]
  - Post procedural swelling [Recovering/Resolving]
  - Joint arthroplasty [Unknown]
